FAERS Safety Report 11263459 (Version 1)
Quarter: 2015Q3

REPORT INFORMATION
  Report Type: Other
  Country: HR (occurrence: HR)
  Receive Date: 20150713
  Receipt Date: 20150713
  Transmission Date: 20151125
  Serious: Yes (Death, Hospitalization, Other)
  Sender: FDA-Public Use
  Company Number: HR-JUBILANT GENERICS LIMITED-1040488

PATIENT
  Age: 53 Year
  Sex: Male

DRUGS (3)
  1. QUETIAPINE FUMARATE. [Suspect]
     Active Substance: QUETIAPINE FUMARATE
  2. NITRAZEPAM [Suspect]
     Active Substance: NITRAZEPAM
  3. ALCOHOL. [Suspect]
     Active Substance: ALCOHOL

REACTIONS (7)
  - Poisoning [Fatal]
  - Cardiac arrest [Fatal]
  - Respiratory acidosis [Unknown]
  - Completed suicide [Fatal]
  - Potentiating drug interaction [Fatal]
  - Intentional overdose [Fatal]
  - Renal failure [Unknown]

NARRATIVE: CASE EVENT DATE: 20150629
